FAERS Safety Report 6911347-9 (Version None)
Quarter: 2010Q3

REPORT INFORMATION
  Report Type: 
  Country: None (occurrence: None)
  Receive Date: 20100806
  Receipt Date: 20100804
  Transmission Date: 20110219
  Serious: Yes (Death, Life-Threatening, Hospitalization)
  Sender: FDA-Public Use
  Company Number: DE-BRISTOL-MYERS SQUIBB COMPANY-15195480

PATIENT
  Age: 67 Year
  Sex: Female

DRUGS (30)
  1. CISPLATIN [Suspect]
     Indication: NON-SMALL CELL LUNG CANCER
     Dosage: LAST INF ON 1JUL10.
     Route: 042
     Dates: start: 20100610
  2. PEMETREXED DISODIUM [Suspect]
     Indication: NON-SMALL CELL LUNG CANCER
     Dosage: LAST INF ON 1JUL10.
     Route: 042
     Dates: start: 20100610
  3. BEVACIZUMAB [Suspect]
     Indication: NON-SMALL CELL LUNG CANCER
     Dosage: LAST INF ON 1JUL10.
     Route: 042
     Dates: start: 20100610
  4. MORPHINE [Concomitant]
     Indication: PAIN
     Dates: start: 20100614
  5. METOCLOPRAMIDE HCL [Concomitant]
     Indication: NAUSEA
     Dates: start: 20100611
  6. LORAZEPAM [Concomitant]
     Indication: PAIN
     Dates: start: 20100613
  7. FOLIC ACID [Concomitant]
     Dates: start: 20100601, end: 20100707
  8. VITAMIN B-12 [Concomitant]
     Dates: start: 20100610, end: 20100610
  9. DEXAMETHASONE [Concomitant]
     Dates: start: 20100630, end: 20100702
  10. LEVOTHYROXINE SODIUM [Concomitant]
  11. ESTRADIOL [Concomitant]
  12. BISOPROLOL [Concomitant]
     Dates: start: 20100512
  13. NOVALGIN [Concomitant]
     Dates: start: 20100518
  14. AMITRIPTYLINE HYDROCHLORIDE [Concomitant]
     Dates: start: 20100527
  15. NULYTELY [Concomitant]
     Dates: start: 20100521
  16. ASPIRIN [Concomitant]
     Dates: start: 20100602
  17. PANTOZOL [Concomitant]
     Dates: start: 20100611
  18. TRAMAL [Concomitant]
     Dosage: DROPS
     Dates: start: 20100611
  19. CIPRO [Concomitant]
     Dates: start: 20100610
  20. METAMIZOLE [Concomitant]
     Dates: start: 20100613
  21. ONDANSETRON [Concomitant]
     Dates: start: 20100610
  22. KALINOR [Concomitant]
     Dates: start: 20100613
  23. HYDROMORPHONE HCL [Concomitant]
     Dates: start: 20100614
  24. CAPROS [Concomitant]
     Dates: start: 20100616
  25. LAXOBERAL [Concomitant]
     Dates: start: 20100629
  26. TEPILTA [Concomitant]
     Dates: start: 20100701, end: 20100701
  27. FRESUBIN [Concomitant]
     Dates: start: 20100630
  28. POTASSIUM [Concomitant]
  29. ALUMINUM HYDROXIDE GEL [Concomitant]
  30. MAGNESIUM HYDROXIDE TAB [Concomitant]

REACTIONS (3)
  - COMA [None]
  - DEHYDRATION [None]
  - PNEUMONIA ASPIRATION [None]
